FAERS Safety Report 4934255-1 (Version None)
Quarter: 2006Q1

REPORT INFORMATION
  Report Type: 
  Country: None (occurrence: None)
  Receive Date: 20060307
  Receipt Date: 20050818
  Transmission Date: 20060701
  Serious: Yes (Other)
  Sender: FDA-Public Use
  Company Number: 200516286US

PATIENT
  Sex: Female

DRUGS (3)
  1. ALLEGRA [Suspect]
     Indication: RHINITIS
     Dosage: DOSE: UNK
  2. CHLOPRPHEN/PSEUD [Suspect]
     Indication: RHINITIS
     Dosage: DOSE: UNK
     Dates: start: 20011207
  3. ALLEGRA [Suspect]
     Dosage: DOSE: UNK

REACTIONS (1)
  - ATRIAL FIBRILLATION [None]
